FAERS Safety Report 13575374 (Version 1)
Quarter: 2017Q2

REPORT INFORMATION
  Report Type: Spontaneous
  Country: US (occurrence: US)
  Receive Date: 20170524
  Receipt Date: 20170524
  Transmission Date: 20170830
  Serious: Yes (Other)
  Sender: FDA-Public Use
  Company Number: US-ROCHE-1938482

PATIENT
  Sex: Female

DRUGS (1)
  1. XOLAIR [Suspect]
     Active Substance: OMALIZUMAB
     Indication: PRODUCT USED FOR UNKNOWN INDICATION
     Route: 065

REACTIONS (8)
  - Menstruation irregular [Unknown]
  - Vomiting [Unknown]
  - Depression [Unknown]
  - Dizziness [Unknown]
  - Syncope [Unknown]
  - Palpitations [Unknown]
  - Vertigo [Unknown]
  - Pain [Unknown]
